FAERS Safety Report 15868351 (Version 1)
Quarter: 2019Q1

REPORT INFORMATION
  Report Type: Spontaneous
  Country: FR (occurrence: FR)
  Receive Date: 20190125
  Receipt Date: 20190125
  Transmission Date: 20190417
  Serious: Yes (Hospitalization, Other)
  Sender: FDA-Public Use
  Company Number: FR-009507513-2006SP002729

PATIENT
  Age: 40 Year
  Sex: Female

DRUGS (5)
  1. ADVIL [Suspect]
     Active Substance: IBUPROFEN
     Indication: UNEVALUABLE EVENT
     Dosage: (AS NECESSARY)
     Route: 048
  2. SUPRADYNE [Suspect]
     Active Substance: MINERALS\VITAMINS
     Indication: UNEVALUABLE EVENT
     Dosage: 1 DOSAGE FORM, QD
     Route: 048
     Dates: start: 20060401, end: 20060410
  3. AERIUS (DESLORATADINE) [Suspect]
     Active Substance: DESLORATADINE
     Indication: THERAPEUTIC RESPONSE CHANGED
     Dosage: 0 DF, UNKNOWN
     Route: 048
  4. AERIUS (DESLORATADINE) [Suspect]
     Active Substance: DESLORATADINE
     Indication: UNEVALUABLE EVENT
  5. HERBS (UNSPECIFIED) [Suspect]
     Active Substance: HERBALS
     Indication: PRODUCT USED FOR UNKNOWN INDICATION
     Dosage: 4 DF, QD
     Dates: start: 20060323, end: 20060407

REACTIONS (3)
  - Hepatitis [Recovering/Resolving]
  - Ocular icterus [Unknown]
  - Cholestasis [Unknown]

NARRATIVE: CASE EVENT DATE: 20060411
